FAERS Safety Report 16102772 (Version 1)
Quarter: 2019Q1

REPORT INFORMATION
  Report Type: Spontaneous
  Country: US (occurrence: US)
  Receive Date: 20190321
  Receipt Date: 20190321
  Transmission Date: 20190418
  Serious: No
  Sender: FDA-Public Use
  Company Number: US-ARRAY-2019-05020

PATIENT

DRUGS (6)
  1. BRAFTOVI [Suspect]
     Active Substance: ENCORAFENIB
     Indication: COLORECTAL CANCER METASTATIC
     Dosage: 300 MG, UNK
     Dates: start: 201809
  2. BRAFTOVI [Suspect]
     Active Substance: ENCORAFENIB
     Dosage: 450 MG, QD
  3. CETUXIMAB. [Concomitant]
     Active Substance: CETUXIMAB
     Indication: COLORECTAL CANCER METASTATIC
     Dosage: ONCE A WEEK INFUSION, WEEKLY
     Route: 042
     Dates: start: 201809
  4. BIOTIN [Concomitant]
     Active Substance: BIOTIN
     Indication: SUPPLEMENTATION THERAPY
     Dosage: 24 MG, UNK
  5. MEKTOVI [Suspect]
     Active Substance: BINIMETINIB
     Indication: COLORECTAL CANCER METASTATIC
     Dosage: 45 MG, UNK
     Dates: start: 201809
  6. DOXYCYCLINE. [Concomitant]
     Active Substance: DOXYCYCLINE
     Indication: REACTION TO EXCIPIENT
     Dosage: 50 MG, BID

REACTIONS (6)
  - Product use in unapproved indication [Unknown]
  - Carcinoembryonic antigen increased [Not Recovered/Not Resolved]
  - Drug ineffective [Not Recovered/Not Resolved]
  - Carbohydrate antigen 19-9 increased [Not Recovered/Not Resolved]
  - Weight increased [Not Recovered/Not Resolved]
  - Disease progression [Not Recovered/Not Resolved]

NARRATIVE: CASE EVENT DATE: 201809
